FAERS Safety Report 7192308-4 (Version None)
Quarter: 2010Q4

REPORT INFORMATION
  Report Type: 
  Country: None (occurrence: None)
  Receive Date: 20101223
  Receipt Date: 20101207
  Transmission Date: 20110411
  Serious: Yes (Other)
  Sender: FDA-Public Use
  Company Number: US-BAYER-2010-003140

PATIENT
  Sex: Female

DRUGS (2)
  1. YASMIN [Suspect]
     Route: 048
  2. OCELLA [Suspect]
     Route: 048

REACTIONS (3)
  - CHOLECYSTECTOMY [None]
  - INJURY [None]
  - PAIN [None]
